FAERS Safety Report 9646170 (Version 2)
Quarter: 2013Q4

REPORT INFORMATION
  Report Type: Spontaneous
  Country: US (occurrence: US)
  Receive Date: 20131025
  Receipt Date: 20131121
  Transmission Date: 20140711
  Serious: Yes (Other)
  Sender: FDA-Public Use
  Company Number: CHPA2013US015872

PATIENT
  Age: 79 Year
  Sex: Female

DRUGS (2)
  1. MAALOX QUICK DISSOLVE EXTRA STRENGTH WITH ANTIGAS [Suspect]
     Indication: DYSPEPSIA
     Dosage: 1 DF, PRN
     Route: 048
  2. MAALOX UNKNOWN [Suspect]
     Indication: DYSPEPSIA
     Dosage: UNK, UNK
     Route: 048

REACTIONS (3)
  - Renal injury [Unknown]
  - Vomiting [Unknown]
  - Expired drug administered [Unknown]
